FAERS Safety Report 6599040-6 (Version None)
Quarter: 2010Q1

REPORT INFORMATION
  Report Type: 
  Country: None (occurrence: None)
  Receive Date: 20100224
  Receipt Date: 20090714
  Transmission Date: 20100710
  Serious: No
  Sender: FDA-Public Use
  Company Number: US-BRISTOL-MYERS SQUIBB COMPANY-14703052

PATIENT
  Sex: Female

DRUGS (2)
  1. GLUCOPHAGE [Suspect]
  2. NOVOLOG [Suspect]
     Dosage: 1 DF=70/30; NOVOLOG R MIX 70/30 FLEXPEN R

REACTIONS (3)
  - BLOOD GLUCOSE FLUCTUATION [None]
  - JOINT SWELLING [None]
  - WEIGHT INCREASED [None]
